FAERS Safety Report 17100978 (Version 6)
Quarter: 2021Q1

REPORT INFORMATION
  Report Type: Spontaneous
  Country: US (occurrence: US)
  Receive Date: 20191202
  Receipt Date: 20210217
  Transmission Date: 20210419
  Serious: No
  Sender: FDA-Public Use
  Company Number: US-SA-2019SA330555

PATIENT
  Age: 54 Year
  Sex: Female

DRUGS (1)
  1. DUPIXENT [Suspect]
     Active Substance: DUPILUMAB
     Indication: PRODUCT USED FOR UNKNOWN INDICATION
     Dosage: 300 MG, QOW, 300 MG/2ML
     Route: 058
     Dates: start: 201910

REACTIONS (13)
  - Eye pain [Unknown]
  - Musculoskeletal stiffness [Unknown]
  - Oropharyngeal pain [Unknown]
  - Abdominal pain upper [Unknown]
  - Vision blurred [Unknown]
  - Headache [Unknown]
  - Pain [Unknown]
  - Sinus disorder [Unknown]
  - Blood magnesium decreased [Unknown]
  - Dry skin [Unknown]
  - Blood potassium decreased [Unknown]
  - Blister [Unknown]
  - Rash [Unknown]

NARRATIVE: CASE EVENT DATE: 2019
